FAERS Safety Report 23939607 (Version 1)
Quarter: 2024Q2

REPORT INFORMATION
  Report Type: Spontaneous
  Country: US (occurrence: US)
  Receive Date: 20240605
  Receipt Date: 20240605
  Transmission Date: 20240717
  Serious: No
  Sender: FDA-Public Use
  Company Number: US-OTSUKA-2022_038483

PATIENT
  Age: 75 Year
  Sex: Female
  Weight: 59.87 kg

DRUGS (5)
  1. SAMSCA [Suspect]
     Active Substance: TOLVAPTAN
     Indication: Oedema
     Dosage: 15 MG, QD
     Route: 065
     Dates: start: 20220627, end: 20220704
  2. SAMSCA [Suspect]
     Active Substance: TOLVAPTAN
     Dosage: 7.5 MG, QD
     Route: 065
     Dates: start: 20220704
  3. LASIX [Suspect]
     Active Substance: FUROSEMIDE
     Indication: Oedema
     Dosage: 40 MG
     Route: 065
  4. SPIRONOLACTONE [Suspect]
     Active Substance: SPIRONOLACTONE
     Indication: Oedema
     Dosage: 100 MG
     Route: 065
  5. ADVIL [Concomitant]
     Active Substance: IBUPROFEN\IBUPROFEN SODIUM
     Indication: Pain
     Dosage: UNK
     Route: 065

REACTIONS (14)
  - Incontinence [Not Recovered/Not Resolved]
  - Peripheral swelling [Not Recovered/Not Resolved]
  - Gait disturbance [Unknown]
  - Swelling of eyelid [Not Recovered/Not Resolved]
  - Hot flush [Unknown]
  - Muscular weakness [Not Recovered/Not Resolved]
  - Joint swelling [Not Recovered/Not Resolved]
  - Burning sensation [Not Recovered/Not Resolved]
  - Myalgia [Not Recovered/Not Resolved]
  - Pain in extremity [Unknown]
  - Arthralgia [Unknown]
  - Constipation [Unknown]
  - Product use in unapproved indication [Unknown]
  - Wrong technique in product usage process [Unknown]

NARRATIVE: CASE EVENT DATE: 20220627
